FAERS Safety Report 5033840-9 (Version None)
Quarter: 2006Q2

REPORT INFORMATION
  Report Type: 
  Country: None (occurrence: None)
  Receive Date: 20060623
  Receipt Date: 20060616
  Transmission Date: 20061013
  Serious: Yes (Hospitalization)
  Sender: FDA-Public Use
  Company Number: JP-AVENTIS-200616480GDDC

PATIENT
  Age: 50 Year
  Sex: Male

DRUGS (3)
  1. ISCOTIN [Suspect]
     Indication: PULMONARY TUBERCULOSIS
     Dates: start: 20051128
  2. RIFADIN [Suspect]
     Indication: PULMONARY TUBERCULOSIS
     Route: 048
     Dates: start: 20051128
  3. ETHAMBUTOL [Concomitant]
     Indication: PULMONARY TUBERCULOSIS
     Dates: start: 20051128

REACTIONS (1)
  - HEPATIC FAILURE [None]
